FAERS Safety Report 9722814 (Version 3)
Quarter: 2013Q4

REPORT INFORMATION
  Report Type: Spontaneous
  Country: JP (occurrence: JP)
  Receive Date: 20131202
  Receipt Date: 20131216
  Transmission Date: 20140711
  Serious: Yes (Other)
  Sender: FDA-Public Use
  Company Number: JP-PFIZER INC-2013062808

PATIENT
  Sex: Female
  Weight: 2.9 kg

DRUGS (1)
  1. DETRUSITOL [Suspect]
     Indication: HYPERTONIC BLADDER
     Dosage: ONCE A DAY
     Route: 064
     Dates: start: 20130122, end: 20130129

REACTIONS (3)
  - Foetal hypokinesia [Unknown]
  - Foetal non-stress test abnormal [Unknown]
  - Foetal exposure during pregnancy [Unknown]
